FAERS Safety Report 21904440 (Version 4)
Quarter: 2023Q2

REPORT INFORMATION
  Report Type: Spontaneous
  Country: IE (occurrence: IE)
  Receive Date: 20230124
  Receipt Date: 20230509
  Transmission Date: 20230721
  Serious: Yes (Hospitalization, Other)
  Sender: FDA-Public Use
  Company Number: IE-MYLANLABS-2023M1006995

PATIENT
  Sex: Male

DRUGS (2)
  1. CLOZARIL [Suspect]
     Active Substance: CLOZAPINE
     Indication: Schizophrenia
     Dosage: 450 MILLIGRAM, QD
     Route: 048
     Dates: start: 20010701, end: 20220806
  2. CLOZARIL [Suspect]
     Active Substance: CLOZAPINE
     Dosage: UNK
     Route: 048
     Dates: end: 20230422

REACTIONS (6)
  - Mental disorder [Recovered/Resolved]
  - Illness [Unknown]
  - Mental impairment [Unknown]
  - Psychotic disorder [Unknown]
  - Malaise [Recovering/Resolving]
  - COVID-19 [Recovering/Resolving]
